FAERS Safety Report 4905740-3 (Version None)
Quarter: 2006Q1

REPORT INFORMATION
  Report Type: 
  Country: None (occurrence: None)
  Receive Date: 20060208
  Receipt Date: 20051006
  Transmission Date: 20060701
  Serious: Yes (Death, Hospitalization)
  Sender: FDA-Public Use
  Company Number: US-MERCK-0510USA05538

PATIENT
  Age: 79 Year
  Sex: Female
  Weight: 68 kg

DRUGS (11)
  1. VIOXX [Suspect]
     Indication: ARTHRALGIA
     Route: 048
     Dates: start: 20030205, end: 20030205
  2. VIOXX [Suspect]
     Route: 048
     Dates: start: 20030206, end: 20030501
  3. VIOXX [Suspect]
     Indication: PELVIC PAIN
     Route: 048
     Dates: start: 20030205, end: 20030205
  4. VIOXX [Suspect]
     Route: 048
     Dates: start: 20030206, end: 20030501
  5. AGGRENOX [Concomitant]
     Route: 048
     Dates: start: 20010101, end: 20030501
  6. CENTRUM [Concomitant]
     Route: 065
  7. NIACIN [Concomitant]
     Route: 065
  8. ATIVAN [Concomitant]
     Route: 065
  9. NORTRIPTYLINE [Concomitant]
     Route: 065
  10. DARVOCET-N 50 [Concomitant]
     Route: 065
  11. CALCIUM (UNSPECIFIED) [Concomitant]
     Route: 065

REACTIONS (10)
  - ACUTE MYOCARDIAL INFARCTION [None]
  - ACUTE PULMONARY OEDEMA [None]
  - ANOXIC ENCEPHALOPATHY [None]
  - CARDIAC ARREST [None]
  - CARDIO-RESPIRATORY ARREST [None]
  - CORONARY ARTERY DISEASE [None]
  - HEPATIC ENZYME INCREASED [None]
  - LIVER DISORDER [None]
  - MITRAL VALVE INCOMPETENCE [None]
  - VENTRICULAR TACHYCARDIA [None]
